FAERS Safety Report 7528984-3 (Version None)
Quarter: 2011Q2

REPORT INFORMATION
  Report Type: 
  Country: None (occurrence: None)
  Receive Date: 20110607
  Receipt Date: 20110603
  Transmission Date: 20111010
  Serious: Yes (Death, Other)
  Sender: FDA-Public Use
  Company Number: US-ASTRAZENECA-2010SE28418

PATIENT
  Age: 63 Year
  Sex: Female
  Weight: 69.9 kg

DRUGS (15)
  1. SEROQUEL [Suspect]
     Route: 048
  2. RANITIDINE [Concomitant]
     Indication: ABDOMINAL DISCOMFORT
  3. DIAZEPAM [Concomitant]
     Dosage: AS REQIURED
  4. SEROQUEL [Suspect]
     Route: 048
  5. LEVOTHYROXINE SODIUM [Concomitant]
  6. SEROQUEL [Suspect]
     Indication: DEPRESSION
     Route: 048
     Dates: start: 20100526, end: 20100607
  7. PANTOPRAZOLE [Concomitant]
     Indication: ABDOMINAL DISCOMFORT
  8. WELLBUTRIN [Concomitant]
  9. SYNTHROID [Concomitant]
     Indication: THYROID DISORDER
  10. BUPROPION HCL [Concomitant]
  11. PULMICORT FLEXHALER [Suspect]
     Route: 055
  12. SEROQUEL [Suspect]
     Indication: BIPOLAR DISORDER
     Route: 048
     Dates: start: 20100526, end: 20100607
  13. EMSAMPATCH [Concomitant]
  14. PULMICORT FLEXHALER [Suspect]
     Dosage: USE ONLY AS NEEDED
     Route: 055
  15. SPIRONOLACTONE [Concomitant]
     Indication: HAIR DISORDER

REACTIONS (5)
  - RETROPERITONEAL CANCER [None]
  - INSOMNIA [None]
  - INCORRECT DOSE ADMINISTERED [None]
  - HAEMORRHAGE [None]
  - NEOPLASM MALIGNANT [None]
